FAERS Safety Report 4634859-X (Version None)
Quarter: 2005Q2

REPORT INFORMATION
  Report Type: 
  Country: None (occurrence: None)
  Receive Date: 20050414
  Receipt Date: 20050330
  Transmission Date: 20051028
  Serious: Yes (Death)
  Sender: FDA-Public Use
  Company Number: US-KINGPHARMUSA00001-K200500450

PATIENT
  Age: 54 Year
  Sex: Female

DRUGS (5)
  1. SKELAXIN [Suspect]
  2. FLURAZEPAM [Suspect]
  3. GABAPENTIN [Suspect]
  4. CITALOPRAM HYDROBROMIDE [Suspect]
  5. ACETAMINOPHEN [Suspect]

REACTIONS (4)
  - COMPLETED SUICIDE [None]
  - DEPRESSED LEVEL OF CONSCIOUSNESS [None]
  - DRUG TOXICITY [None]
  - POISONING [None]
